FAERS Safety Report 21723548 (Version 1)
Quarter: 2022Q4

REPORT INFORMATION
  Report Type: Spontaneous
  Country: US (occurrence: None)
  Receive Date: 20221213
  Receipt Date: 20221213
  Transmission Date: 20230113
  Serious: Yes (Hospitalization, Disabling)
  Sender: FDA-Public Use
  Company Number: None

PATIENT
  Age: 32 Year
  Sex: Male
  Weight: 108 kg

DRUGS (2)
  1. CIPROFLOXACIN [Suspect]
     Active Substance: CIPROFLOXACIN
     Indication: Abdominal infection
     Dosage: OTHER QUANTITY : 7 TABLET(S);?FREQUENCY : TWICE A DAY;?
     Route: 048
     Dates: start: 2022, end: 20221211
  2. CIPROFLOXACIN [Suspect]
     Active Substance: CIPROFLOXACIN
     Indication: Appendicitis

REACTIONS (9)
  - Myalgia [None]
  - Confusional state [None]
  - Burning sensation [None]
  - Neuralgia [None]
  - Gait disturbance [None]
  - Muscular weakness [None]
  - Muscle atrophy [None]
  - Tendon disorder [None]
  - Tendon pain [None]

NARRATIVE: CASE EVENT DATE: 20220617
